FAERS Safety Report 25712421 (Version 1)
Quarter: 2025Q3

REPORT INFORMATION
  Report Type: Report from Study
  Country: CN (occurrence: CN)
  Receive Date: 20250821
  Receipt Date: 20250821
  Transmission Date: 20251020
  Serious: Yes (Hospitalization, Other)
  Sender: ELI LILLY AND COMPANY
  Company Number: CN-ELI_LILLY_AND_COMPANY-CN202309017177

PATIENT
  Age: 66 Year
  Sex: Female
  Weight: 59 kg

DRUGS (6)
  1. ABEMACICLIB [Suspect]
     Active Substance: ABEMACICLIB
     Indication: Breast cancer
     Dosage: 150 MG, BID
     Route: 048
     Dates: start: 20230915
  2. ABEMACICLIB [Suspect]
     Active Substance: ABEMACICLIB
     Dosage: 150 MG, BID
     Route: 048
  3. ABEMACICLIB [Suspect]
     Active Substance: ABEMACICLIB
     Route: 048
     Dates: end: 20250721
  4. EXEMESTANE [Concomitant]
     Active Substance: EXEMESTANE
     Indication: Product used for unknown indication
  5. CALCIUM CARBONATE\CHOLECALCIFEROL [Concomitant]
     Active Substance: CALCIUM CARBONATE\CHOLECALCIFEROL
     Indication: Product used for unknown indication
  6. ANASTROZOLE [Concomitant]
     Active Substance: ANASTROZOLE
     Indication: Product used for unknown indication

REACTIONS (21)
  - Oedema peripheral [Unknown]
  - Pleural effusion [Not Recovered/Not Resolved]
  - Gait disturbance [Recovering/Resolving]
  - Feeding disorder [Unknown]
  - Vomiting [Recovered/Resolved]
  - Malignant neoplasm progression [Unknown]
  - Blood uric acid increased [Recovered/Resolved]
  - Discomfort [Unknown]
  - Blood creatine decreased [Unknown]
  - Inflammation [Unknown]
  - Cough [Unknown]
  - Pain in extremity [Unknown]
  - Dysuria [Not Recovered/Not Resolved]
  - Drug resistance [Unknown]
  - Abdominal discomfort [Recovering/Resolving]
  - Red blood cell count decreased [Recovering/Resolving]
  - Blood creatinine increased [Recovered/Resolved]
  - Nasopharyngitis [Unknown]
  - White blood cell count decreased [Recovering/Resolving]
  - Nausea [Not Recovered/Not Resolved]
  - Diarrhoea [Recovering/Resolving]

NARRATIVE: CASE EVENT DATE: 20250601
